FAERS Safety Report 5146027-6 (Version None)
Quarter: 2006Q4

REPORT INFORMATION
  Report Type: 
  Country: None (occurrence: None)
  Receive Date: 20061108
  Receipt Date: 20050114
  Transmission Date: 20070319
  Serious: Yes (Other)
  Sender: FDA-Public Use
  Company Number: US-GLAXOSMITHKLINE-A0541153A

PATIENT
  Age: 53 Year
  Sex: Female

DRUGS (2)
  1. IMITREX [Suspect]
     Indication: MIGRAINE
     Route: 048
  2. FIORICET [Concomitant]
     Indication: MIGRAINE

REACTIONS (15)
  - ABDOMINAL PAIN UPPER [None]
  - AORTIC ARTERIOSCLEROSIS [None]
  - BRONCHITIS ACUTE [None]
  - BRONCHOSPASM [None]
  - CARDIAC FAILURE [None]
  - COUGH [None]
  - DIARRHOEA [None]
  - EJECTION FRACTION DECREASED [None]
  - INTRACARDIAC THROMBUS [None]
  - MALAISE [None]
  - MITRAL VALVE CALCIFICATION [None]
  - MITRAL VALVE INCOMPETENCE [None]
  - MYALGIA [None]
  - MYOCARDIAL INFARCTION [None]
  - THROMBOSIS [None]
